FAERS Safety Report 23113984 (Version 1)
Quarter: 2023Q4

REPORT INFORMATION
  Report Type: Spontaneous
  Country: US (occurrence: US)
  Receive Date: 20231027
  Receipt Date: 20231027
  Transmission Date: 20240109
  Serious: Yes (Hospitalization, Other)
  Sender: FDA-Public Use
  Company Number: US-APOTEX-2023AP016051

PATIENT
  Age: 22 Year

DRUGS (9)
  1. DULOXETINE [Interacting]
     Active Substance: DULOXETINE
     Indication: Product used for unknown indication
     Dosage: 40 MILLIGRAM, BID
     Route: 065
     Dates: start: 20211229
  2. DULOXETINE [Interacting]
     Active Substance: DULOXETINE
     Dosage: 40 MILLIGRAM, QD
     Route: 065
  3. BUPROPION [Interacting]
     Active Substance: BUPROPION
     Indication: Product used for unknown indication
     Dosage: 300 MILLIGRAM, QD
     Route: 065
     Dates: start: 20211229
  4. BUPROPION [Interacting]
     Active Substance: BUPROPION
     Dosage: 450 MILLIGRAM, QD
     Route: 065
     Dates: start: 20220301, end: 20220428
  5. GABAPENTIN [Interacting]
     Active Substance: GABAPENTIN
     Indication: Headache
     Dosage: 100 MILLIGRAM, TID
     Route: 065
     Dates: start: 20220112
  6. GABAPENTIN [Interacting]
     Active Substance: GABAPENTIN
     Dosage: 300 MILLIGRAM, TID (DAILY)
     Route: 065
     Dates: start: 20220210
  7. GABAPENTIN [Interacting]
     Active Substance: GABAPENTIN
     Dosage: 200 MILLIGRAM
     Route: 065
  8. GABAPENTIN [Interacting]
     Active Substance: GABAPENTIN
     Dosage: 300 MILLIGRAM, TID
     Route: 065
  9. AMANTADINE [Suspect]
     Active Substance: AMANTADINE
     Indication: Post-traumatic headache
     Dosage: 100 MILLIGRAM, BID
     Route: 065
     Dates: start: 202204, end: 20230428

REACTIONS (2)
  - Drug interaction [Unknown]
  - Serotonin syndrome [Recovered/Resolved]

NARRATIVE: CASE EVENT DATE: 20220101
